FAERS Safety Report 19236536 (Version 2)
Quarter: 2021Q4

REPORT INFORMATION
  Report Type: Spontaneous
  Country: US (occurrence: US)
  Receive Date: 20210510
  Receipt Date: 20211206
  Transmission Date: 20220303
  Serious: Yes (Other)
  Sender: FDA-Public Use
  Company Number: US-SA-SAC20210506000489

PATIENT
  Sex: Female

DRUGS (1)
  1. AUBAGIO [Suspect]
     Active Substance: TERIFLUNOMIDE
     Indication: Multiple sclerosis
     Dosage: 14 MG, QD
     Route: 048
     Dates: start: 20200624

REACTIONS (5)
  - Fatigue [Not Recovered/Not Resolved]
  - Depression [Unknown]
  - Asthenia [Unknown]
  - Impaired quality of life [Unknown]
  - Product dose omission in error [Unknown]
